FAERS Safety Report 5522214-X (Version None)
Quarter: 2007Q4

REPORT INFORMATION
  Report Type: 
  Country: None (occurrence: None)
  Receive Date: 20071120
  Receipt Date: 20071115
  Transmission Date: 20080405
  Serious: Yes (Other)
  Sender: FDA-Public Use
  Company Number: D0055153A

PATIENT
  Age: 7 Year
  Sex: Male

DRUGS (1)
  1. ATMADISC MITE [Suspect]
     Dosage: 150UG TWICE PER DAY
     Route: 055
     Dates: start: 20060101

REACTIONS (2)
  - CENTRAL OBESITY [None]
  - PITUITARY-DEPENDENT CUSHING'S SYNDROME [None]
